FAERS Safety Report 24871419 (Version 2)
Quarter: 2025Q1

REPORT INFORMATION
  Report Type: Spontaneous
  Country: CN (occurrence: CN)
  Receive Date: 20250122
  Receipt Date: 20250123
  Transmission Date: 20250408
  Serious: Yes (Hospitalization)
  Sender: JIANGSU HENGRUI PHARMACEUTICALS CO., LTD.
  Company Number: CN-JIANGSU HENGRUI PHARMACEUTICALS CO., LTD.-H2025200866

PATIENT
  Age: 60 Year
  Weight: 55 kg

DRUGS (3)
  1. OXALIPLATIN [Suspect]
     Active Substance: OXALIPLATIN
     Indication: Gastric neoplasm
  2. CAPECITABINE [Suspect]
     Active Substance: CAPECITABINE
     Indication: Gastric neoplasm
  3. SINTILIMAB [Suspect]
     Active Substance: SINTILIMAB
     Indication: Gastric neoplasm

REACTIONS (3)
  - Nausea [Recovering/Resolving]
  - Night sweats [Recovering/Resolving]
  - Pyrexia [Recovering/Resolving]
